FAERS Safety Report 9305545 (Version 7)
Quarter: 2013Q3

REPORT INFORMATION
  Report Type: Spontaneous
  Country: US (occurrence: US)
  Receive Date: 20130523
  Receipt Date: 20130830
  Transmission Date: 20140515
  Serious: No
  Sender: FDA-Public Use
  Company Number: US-VERTEX PHARMACEUTICALS INC-2013-006278

PATIENT
  Age: 57 Year
  Sex: Male
  Weight: 100 kg

DRUGS (3)
  1. INCIVEK [Suspect]
     Indication: HEPATITIS C
     Dosage: 750 MG, TID
     Route: 048
     Dates: start: 20130520, end: 20130804
  2. RIBAVIRIN [Suspect]
     Indication: HEPATITIS C
     Dosage: 600 MG, BID
     Route: 048
     Dates: start: 20130520
  3. PEGASYS [Suspect]
     Indication: HEPATITIS C
     Dosage: 180 ?G, QW
     Route: 058
     Dates: start: 20130519

REACTIONS (12)
  - Dyspnoea [Not Recovered/Not Resolved]
  - Heart rate increased [Not Recovered/Not Resolved]
  - Foreign body [Unknown]
  - Abdominal discomfort [Not Recovered/Not Resolved]
  - Drug dose omission [Recovered/Resolved]
  - Asthenia [Unknown]
  - Fatigue [Unknown]
  - Product taste abnormal [Unknown]
  - Anaemia [Not Recovered/Not Resolved]
  - Vomiting [Unknown]
  - Rash maculo-papular [Not Recovered/Not Resolved]
  - Pruritus [Unknown]
